FAERS Safety Report 10133382 (Version 2)
Quarter: 2014Q2

REPORT INFORMATION
  Report Type: Spontaneous
  Country: IT (occurrence: IT)
  Receive Date: 20140428
  Receipt Date: 20140428
  Transmission Date: 20141212
  Serious: Yes (Other)
  Sender: FDA-Public Use
  Company Number: IT-ACTAVIS-2014-07567

PATIENT
  Age: 36 Year
  Sex: 0

DRUGS (1)
  1. DOCETAXEL [Suspect]
     Indication: BREAST CANCER
     Dosage: 150 MG, DAILY
     Route: 042
     Dates: start: 20140321, end: 20140321

REACTIONS (1)
  - Febrile neutropenia [Recovered/Resolved]
